FAERS Safety Report 10482295 (Version 1)
Quarter: 2014Q3

REPORT INFORMATION
  Report Type: Spontaneous
  Country: US (occurrence: US)
  Receive Date: 20140929
  Receipt Date: 20140929
  Transmission Date: 20150326
  Serious: Yes (Other)
  Sender: FDA-Public Use
  Company Number: US-TEVA-511156USA

PATIENT
  Age: 11 Year
  Sex: Male

DRUGS (2)
  1. METHYLPREDNISOLONE [Suspect]
     Active Substance: METHYLPREDNISOLONE
     Indication: JUVENILE IDIOPATHIC ARTHRITIS
     Route: 014
  2. LIDOCAINE. [Suspect]
     Active Substance: LIDOCAINE
     Indication: JUVENILE IDIOPATHIC ARTHRITIS
     Route: 014

REACTIONS (1)
  - Embolia cutis medicamentosa [Recovered/Resolved with Sequelae]
